FAERS Safety Report 13739088 (Version 2)
Quarter: 2018Q2

REPORT INFORMATION
  Report Type: Report from Study
  Country: US (occurrence: US)
  Receive Date: 20170710
  Receipt Date: 20180627
  Transmission Date: 20180711
  Serious: No
  Sender: FDA-Public Use
  Company Number: US-SAOL THERAPEUTICS-2017SAO00890

PATIENT
  Age: 70 Year
  Sex: Male

DRUGS (8)
  1. DILAUDID [Suspect]
     Active Substance: HYDROMORPHONE HYDROCHLORIDE
     Dosage: 0.059 MG, \DAY; TOTAL MAXIMUM DAILY DOSE
     Route: 037
     Dates: start: 20141118, end: 20141124
  2. BACLOFEN. [Suspect]
     Active Substance: BACLOFEN
     Dosage: 30 ?G, \DAY; TOTAL MAXIMUM DAILY DOSE
     Route: 037
     Dates: start: 20141118, end: 20141124
  3. BACLOFEN. [Suspect]
     Active Substance: BACLOFEN
     Dosage: 20.02 ?G, \DAY
     Route: 037
     Dates: start: 20141124
  4. BACLOFEN. [Suspect]
     Active Substance: BACLOFEN
     Dosage: 30 ?G, \DAY; TOTAL MAXIMUM DAILY DOSE
     Route: 037
     Dates: start: 20141124
  5. BACLOFEN. [Suspect]
     Active Substance: BACLOFEN
     Dosage: 18.04 ?G, \DAY
     Route: 037
     Dates: start: 20141118, end: 20141124
  6. DILAUDID [Suspect]
     Active Substance: HYDROMORPHONE HYDROCHLORIDE
     Dosage: 0.036 MG, \DAY
     Route: 037
     Dates: start: 20141118, end: 20141124
  7. DILAUDID [Suspect]
     Active Substance: HYDROMORPHONE HYDROCHLORIDE
     Dosage: .04 MG, \DAY
     Route: 037
     Dates: start: 20141124
  8. DILAUDID [Suspect]
     Active Substance: HYDROMORPHONE HYDROCHLORIDE
     Dosage: 0.059 MG, \DAY; TOTAL MAXIMUM DAILY DOSE
     Route: 037
     Dates: start: 20141124

REACTIONS (2)
  - Incontinence [Recovered/Resolved]
  - Unevaluable event [Recovered/Resolved]

NARRATIVE: CASE EVENT DATE: 20150218
